FAERS Safety Report 6699256-4 (Version None)
Quarter: 2010Q2

REPORT INFORMATION
  Report Type: 
  Country: None (occurrence: None)
  Receive Date: 20100427
  Receipt Date: 20100414
  Transmission Date: 20101027
  Serious: Yes (Other)
  Sender: FDA-Public Use
  Company Number: US-ELI_LILLY_AND_COMPANY-US201004004289

PATIENT
  Sex: Male

DRUGS (3)
  1. GEMZAR [Suspect]
     Indication: BLADDER CANCER
  2. CARBOPLATIN [Concomitant]
     Indication: BLADDER CANCER
  3. TAXOTERE [Concomitant]
     Indication: BLADDER CANCER

REACTIONS (2)
  - DYSPLASIA [None]
  - TRANSITIONAL CELL CARCINOMA [None]
